FAERS Safety Report 21861149 (Version 2)
Quarter: 2023Q1

REPORT INFORMATION
  Report Type: Spontaneous
  Country: US (occurrence: US)
  Receive Date: 20230113
  Receipt Date: 20230217
  Transmission Date: 20230418
  Serious: No
  Sender: FDA-Public Use
  Company Number: US-PFIZER INC-PV202300006134

PATIENT
  Age: 66 Year
  Sex: Female
  Weight: 70.93 kg

DRUGS (1)
  1. IBRANCE [Suspect]
     Active Substance: PALBOCICLIB
     Indication: Breast cancer female
     Dosage: 125 MG, CYCLIC (1 TAB ON DAYS 1-21 IN A 28 DAY CYCLE)
     Route: 048
     Dates: start: 20220209

REACTIONS (2)
  - Full blood count decreased [Unknown]
  - Malaise [Unknown]
